FAERS Safety Report 5067369-9 (Version None)
Quarter: 2006Q3

REPORT INFORMATION
  Report Type: 
  Country: None (occurrence: None)
  Receive Date: 20060714
  Receipt Date: 20060606
  Transmission Date: 20061208
  Serious: No
  Sender: FDA-Public Use
  Company Number: 2006SP002339

PATIENT
  Age: 48 Year
  Sex: Male
  Weight: 97.5234 kg

DRUGS (1)
  1. LUNESTA [Suspect]
     Indication: INSOMNIA
     Dosage: 3 MG; PRN;ORAL
     Route: 048
     Dates: start: 20060501

REACTIONS (2)
  - DYSGEUSIA [None]
  - INITIAL INSOMNIA [None]
